FAERS Safety Report 10789269 (Version 1)
Quarter: 2015Q1

REPORT INFORMATION
  Report Type: Spontaneous
  Country: US (occurrence: US)
  Receive Date: 20150212
  Receipt Date: 20150212
  Transmission Date: 20150721
  Serious: No
  Sender: FDA-Public Use
  Company Number: US-GLAXOSMITHKLINE-A1076007A

PATIENT

DRUGS (1)
  1. FLOVENT [Suspect]
     Active Substance: FLUTICASONE PROPIONATE
     Indication: ASTHMA
     Dosage: 220 MCG AT UNKNOWN DOSING
     Route: 065
     Dates: start: 20110506

REACTIONS (2)
  - Malaise [Recovered/Resolved]
  - Wheezing [Not Recovered/Not Resolved]
